FAERS Safety Report 21019012 (Version 1)
Quarter: 2022Q2

REPORT INFORMATION
  Report Type: Spontaneous
  Country: CH (occurrence: CH)
  Receive Date: 20220628
  Receipt Date: 20220628
  Transmission Date: 20220721
  Serious: Yes (Hospitalization)
  Sender: FDA-Public Use
  Company Number: None

PATIENT
  Age: 69 Year
  Sex: Female

DRUGS (19)
  1. EDOXABAN TOSYLATE [Interacting]
     Active Substance: EDOXABAN TOSYLATE
     Indication: Atrial fibrillation
     Dosage: 30 MG, QD (30 MG 1-0-0-0)
     Route: 048
     Dates: end: 20220117
  2. EDOXABAN TOSYLATE [Interacting]
     Active Substance: EDOXABAN TOSYLATE
     Indication: Endocarditis noninfective
     Dosage: 30 MG, QD (30 MG 1-0-0-0)
     Route: 048
     Dates: start: 202202
  3. ENOXAPARIN SODIUM [Interacting]
     Active Substance: ENOXAPARIN SODIUM
     Indication: Atrial fibrillation
     Dosage: 80 MG, BID (1-0-1-0)
     Route: 058
     Dates: start: 20220118, end: 20220131
  4. ENOXAPARIN SODIUM [Interacting]
     Active Substance: ENOXAPARIN SODIUM
     Indication: Endocarditis noninfective
     Dosage: 80 MG, BID (1-0-1-0)
     Route: 058
     Dates: start: 202202, end: 202202
  5. VENLAFAXINE [Interacting]
     Active Substance: VENLAFAXINE HYDROCHLORIDE
     Indication: Product used for unknown indication
     Dosage: 225 MG, QD
     Route: 048
  6. PREDNISOLONE [Interacting]
     Active Substance: PREDNISOLONE
     Indication: Product used for unknown indication
     Dosage: 1.5 DF, QD (1.5-0-0-0)
     Route: 048
     Dates: end: 20220203
  7. PREDNISOLONE [Interacting]
     Active Substance: PREDNISOLONE
     Dosage: 20 MG, QD (SHORT-TERM INCREASE)
     Route: 048
     Dates: start: 20220204, end: 20220208
  8. PREDNISOLONE [Interacting]
     Active Substance: PREDNISOLONE
     Dosage: 1.5 DF, QD (1.5-0-0-0)
     Route: 048
     Dates: start: 20220209
  9. ATORVASTATIN [Concomitant]
     Active Substance: ATORVASTATIN
     Indication: Product used for unknown indication
     Dosage: 40 MG, QD (1-0-0-0)
     Route: 048
  10. CALCIMAGON D3 FORTE [Concomitant]
     Indication: Product used for unknown indication
     Dosage: 1 DF, QD (1000 MG/800 IU 1-0-0-0)
     Route: 048
  11. METOPROLOL SUCCINATE [Concomitant]
     Active Substance: METOPROLOL SUCCINATE
     Indication: Product used for unknown indication
     Dosage: 50 MG, QD (1-0-0-0)
     Route: 048
  12. PANTOPRAZOLE SODIUM [Concomitant]
     Active Substance: PANTOPRAZOLE SODIUM
     Indication: Product used for unknown indication
     Dosage: 40 MG, QD (40 MG 1-0-0-0)
     Route: 048
  13. PREGABALIN [Concomitant]
     Active Substance: PREGABALIN
     Indication: Product used for unknown indication
     Dosage: 50 MG, QD (50 MG 1-0-0-0)
     Route: 048
  14. VALTREX [Concomitant]
     Active Substance: VALACYCLOVIR HYDROCHLORIDE
     Indication: Product used for unknown indication
     Dosage: 0.5 DF, QD (500 MG 0.5-0-0-0)
     Route: 048
  15. FLOXAL [Concomitant]
     Active Substance: OFLOXACIN
     Indication: Product used for unknown indication
     Dosage: 0.3 %, BID (0.3% DROPS 1-0-1-0 LOCAL APPLICATION IN THE RIGHT EYE)
     Route: 047
  16. ALENDRONATE SODIUM [Concomitant]
     Active Substance: ALENDRONATE SODIUM
     Indication: Product used for unknown indication
     Dosage: 70 MG, ONCE EVERY 1 WK (70 MG/WEEK)
     Route: 048
  17. DAFALGAN [Concomitant]
     Active Substance: ACETAMINOPHEN
     Indication: Product used for unknown indication
     Dosage: 500 MG, AS NEEDED (500 MG AS NEEDED UPTO TO 4X/DAY)
     Route: 048
  18. NOVALGIN (METAMIZOLE SODIUM) [Concomitant]
     Active Substance: METAMIZOLE SODIUM
     Indication: Product used for unknown indication
     Dosage: 500 MG, AS NEEDED (500 MG AS NEEDED UPTO 4X/DAY)
     Route: 048
  19. TRAMADOL [Concomitant]
     Active Substance: TRAMADOL
     Indication: Product used for unknown indication
     Dosage: 100 MG, AS NEEDED (100 MG AS NEEDED UP TO 2X/DAY)
     Route: 048

REACTIONS (4)
  - Drug interaction [Recovering/Resolving]
  - Shock haemorrhagic [Recovering/Resolving]
  - Abdominal wall haematoma [Recovering/Resolving]
  - Off label use [Unknown]

NARRATIVE: CASE EVENT DATE: 20220201
